FAERS Safety Report 8553321-5 (Version None)
Quarter: 2012Q3

REPORT INFORMATION
  Report Type: 
  Country: None (occurrence: None)
  Receive Date: 20120731
  Receipt Date: 20120717
  Transmission Date: 20120928
  Serious: Yes (Hospitalization)
  Sender: FDA-Public Use
  Company Number: ES-ROCHE-1089360

PATIENT
  Age: 52 Year
  Sex: Male

DRUGS (4)
  1. VEMURAFENIB [Suspect]
     Indication: MALIGNANT MELANOMA
     Dosage: MOST RECENT DOSE: 17/JUL/2012
     Route: 048
     Dates: start: 20120224, end: 20120717
  2. ATORVASTATIN CALCIUM [Concomitant]
  3. DICLOFENAC [Concomitant]
  4. MICARDIS [Concomitant]

REACTIONS (1)
  - MYOCARDIAL INFARCTION [None]
